FAERS Safety Report 5367177-5 (Version None)
Quarter: 2007Q2

REPORT INFORMATION
  Report Type: 
  Country: None (occurrence: None)
  Receive Date: 20070620
  Receipt Date: 20070620
  Transmission Date: 20071010
  Serious: Yes (Hospitalization)
  Sender: FDA-Public Use
  Company Number: None

PATIENT
  Age: 86 Year
  Sex: Male

DRUGS (3)
  1. HYDROCHLOROTHIAZIDE [Suspect]
     Indication: CORONARY ARTERY DISEASE
     Dosage: 12.5MG EVERY DAY PO
     Route: 048
     Dates: start: 20061205, end: 20070512
  2. HYDROCHLOROTHIAZIDE [Suspect]
     Indication: DIABETES MELLITUS
     Dosage: 12.5MG EVERY DAY PO
     Route: 048
     Dates: start: 20061205, end: 20070512
  3. HYDROCHLOROTHIAZIDE [Suspect]
     Indication: HYPERTENSION
     Dosage: 12.5MG EVERY DAY PO
     Route: 048
     Dates: start: 20061205, end: 20070512

REACTIONS (2)
  - DEHYDRATION [None]
  - HYPONATRAEMIA [None]
